FAERS Safety Report 14657390 (Version 1)
Quarter: 2018Q1

REPORT INFORMATION
  Report Type: Report from Study
  Country: DE (occurrence: DE)
  Receive Date: 20180320
  Receipt Date: 20180320
  Transmission Date: 20180509
  Serious: Yes (Other)
  Sender: FDA-Public Use
  Company Number: DE-ROCHE-2080654

PATIENT
  Sex: Male
  Weight: 95.6 kg

DRUGS (2)
  1. RITUXIMAB. [Suspect]
     Active Substance: RITUXIMAB
     Indication: NON-HODGKIN^S LYMPHOMA UNSPECIFIED HISTOLOGY INDOLENT
     Dosage: VOLUME TAKEN: 500 ML?DOSE CONCENTRATION OF LAST RITUXIMAB TAKEN: 1.54 MG/ML?DATE OF MOST RECENT DOSE
     Route: 042
     Dates: start: 20111220
  2. BENDAMUSTINE [Suspect]
     Active Substance: BENDAMUSTINE
     Indication: NON-HODGKIN^S LYMPHOMA UNSPECIFIED HISTOLOGY INDOLENT
     Dosage: DOSE OF LAST BENDAMUSTINE TAKEN: 125 MG?DATE OF MOST RECENT DOSE:15/JUN/2012?90 MG/M2 ADMINISTERED O
     Route: 042
     Dates: start: 20111220

REACTIONS (1)
  - Squamous cell carcinoma of skin [Recovered/Resolved]

NARRATIVE: CASE EVENT DATE: 2017
